FAERS Safety Report 24027602 (Version 1)
Quarter: 2024Q2

REPORT INFORMATION
  Report Type: Spontaneous
  Country: US (occurrence: US)
  Receive Date: 20240628
  Receipt Date: 20240628
  Transmission Date: 20240716
  Serious: No
  Sender: FDA-Public Use
  Company Number: US-BAUSCH-BL-2024-009811

PATIENT
  Age: 80 Year
  Sex: Female

DRUGS (1)
  1. RETIN-A [Suspect]
     Active Substance: TRETINOIN
     Indication: Skin disorder
     Dosage: A PEA-SIZED AMOUNT APPLIED TO THE FACE EVERY THREE DAYS, THEN EVERY OTHER DAY
     Route: 061
     Dates: start: 20240531, end: 20240616

REACTIONS (3)
  - Diarrhoea [Not Recovered/Not Resolved]
  - Abdominal distension [Unknown]
  - Constipation [Recovered/Resolved]

NARRATIVE: CASE EVENT DATE: 20240612
